FAERS Safety Report 11050209 (Version 1)
Quarter: 2015Q2

REPORT INFORMATION
  Report Type: Spontaneous
  Country: CA (occurrence: CA)
  Receive Date: 20150421
  Receipt Date: 20150421
  Transmission Date: 20150821
  Serious: Yes (Life-Threatening, Hospitalization)
  Sender: FDA-Public Use
  Company Number: CA-ASTRAZENECA-2015SE34753

PATIENT
  Sex: Female
  Weight: 54 kg

DRUGS (1)
  1. RHINOCORT AQUA [Suspect]
     Active Substance: BUDESONIDE
     Indication: HEADACHE
     Dosage: 2, EVERY DAY
     Route: 045

REACTIONS (2)
  - Dyspnoea [Recovered/Resolved]
  - Muscle tightness [Recovered/Resolved]
